FAERS Safety Report 4888203-3 (Version None)
Quarter: 2006Q1

REPORT INFORMATION
  Report Type: 
  Country: None (occurrence: None)
  Receive Date: 20060123
  Receipt Date: 20060112
  Transmission Date: 20060701
  Serious: Yes (Hospitalization, Other)
  Sender: FDA-Public Use
  Company Number: SE-BRISTOL-MYERS SQUIBB COMPANY-13256193

PATIENT
  Age: 47 Year
  Sex: Female

DRUGS (6)
  1. HOLOXAN [Suspect]
     Indication: EWING'S SARCOMA
     Route: 041
     Dates: start: 20060109, end: 20060110
  2. ETOPOSIDE [Concomitant]
     Indication: EWING'S SARCOMA
  3. KLEXANE [Concomitant]
  4. NAVOBAN [Concomitant]
  5. BETAPRED [Concomitant]
  6. OMEPRAZOLE [Concomitant]

REACTIONS (3)
  - ABDOMINAL PAIN [None]
  - TONGUE SPASM [None]
  - TRISMUS [None]
